FAERS Safety Report 5122934-5 (Version None)
Quarter: 2006Q4

REPORT INFORMATION
  Report Type: 
  Country: None (occurrence: None)
  Receive Date: 20061005
  Receipt Date: 20060922
  Transmission Date: 20070319
  Serious: Yes (Death, Other)
  Sender: FDA-Public Use
  Company Number: 2006117212

PATIENT
  Age: 45 Year
  Sex: Male

DRUGS (1)
  1. NEURONTIN [Suspect]
     Indication: PAIN

REACTIONS (6)
  - AGGRESSION [None]
  - COMPLETED SUICIDE [None]
  - DRUG INEFFECTIVE [None]
  - GUN SHOT WOUND [None]
  - PARANOIA [None]
  - PSYCHOTIC DISORDER [None]
